FAERS Safety Report 4659383-X (Version None)
Quarter: 2005Q2

REPORT INFORMATION
  Report Type: 
  Country: None (occurrence: None)
  Receive Date: 20050510
  Receipt Date: 20050503
  Transmission Date: 20051028
  Serious: Yes (Death, Hospitalization)
  Sender: FDA-Public Use
  Company Number: 2005AL001647

PATIENT
  Age: 28 Year
  Sex: Male

DRUGS (7)
  1. SERAX [Suspect]
     Dosage: 50 MG; TID; PO
     Route: 048
     Dates: start: 20050408, end: 20050409
  2. ARTANE [Suspect]
     Dates: end: 20050409
  3. LYSANXIA [Suspect]
     Dates: end: 20050409
  4. RIVOTRIL [Suspect]
     Dosage: 3 MG; QID; PO
     Route: 048
     Dates: start: 20050408, end: 20050409
  5. SUBUTEX [Suspect]
     Dosage: 6 MG; QD; PO
     Route: 048
     Dates: start: 20050408, end: 20050409
  6. TERCIAN [Suspect]
     Dosage: 100 MG; QID; PO
     Route: 048
     Dates: start: 20050408, end: 20050409
  7. VENTOLIN [Suspect]
     Dates: end: 20050409

REACTIONS (3)
  - PNEUMONIA ASPIRATION [None]
  - SOMNOLENCE [None]
  - VOMITING [None]
